FAERS Safety Report 14726350 (Version 1)
Quarter: 2018Q2

REPORT INFORMATION
  Report Type: Spontaneous
  Country: FR (occurrence: FR)
  Receive Date: 20180406
  Receipt Date: 20180406
  Transmission Date: 20180711
  Serious: Yes (Other)
  Sender: FDA-Public Use
  Company Number: FR-MERCK KGAA-2045245

PATIENT
  Age: 61 Year
  Sex: Female

DRUGS (1)
  1. NOVOTHYROX [Suspect]
     Active Substance: LEVOTHYROXINE SODIUM
     Indication: AUTOIMMUNE THYROIDITIS

REACTIONS (29)
  - Limb injury [Recovered/Resolved]
  - Rhinorrhoea [Recovered/Resolved]
  - Physical disability [Recovered/Resolved]
  - Irritability [Recovered/Resolved]
  - Thirst [Recovered/Resolved]
  - Pain in jaw [Recovered/Resolved]
  - Loss of personal independence in daily activities [Recovered/Resolved]
  - Vision blurred [Recovered/Resolved]
  - Emotional distress [Recovered/Resolved]
  - Disturbance in attention [Recovered/Resolved]
  - Head discomfort [Recovered/Resolved]
  - Fall [Recovered/Resolved]
  - Fatigue [Recovered/Resolved]
  - Balance disorder [Recovered/Resolved]
  - Urticaria [Recovered/Resolved]
  - Feeling cold [Recovered/Resolved]
  - Impaired driving ability [Recovered/Resolved]
  - Social avoidant behaviour [Recovered/Resolved]
  - Dry mouth [Recovered/Resolved]
  - Muscle spasms [Recovered/Resolved]
  - Pruritus [Recovered/Resolved]
  - Intracranial pressure increased [Recovered/Resolved]
  - Migraine [Recovered/Resolved]
  - Mood altered [Recovered/Resolved]
  - Vertigo [Recovered/Resolved]
  - Blood potassium increased [None]
  - Hyperhidrosis [Recovered/Resolved]
  - Anti-thyroid antibody positive [None]
  - Asthenia [Recovered/Resolved]

NARRATIVE: CASE EVENT DATE: 201703
